FAERS Safety Report 8985201 (Version 2)
Quarter: 2013Q1

REPORT INFORMATION
  Report Type: Spontaneous
  Country: CZ (occurrence: CZ)
  Receive Date: 20121226
  Receipt Date: 20130111
  Transmission Date: 20140127
  Serious: Yes (Hospitalization, Other)
  Sender: FDA-Public Use
  Company Number: CZ-PFIZER INC-2012326408

PATIENT
  Age: 68 Year
  Sex: Male

DRUGS (8)
  1. EPANUTIN [Suspect]
     Indication: STATUS EPILEPTICUS
     Dosage: 1250 MG, 16MG/KG, 50MG/MIN
     Route: 041
     Dates: start: 20121211, end: 20121211
  2. KEPPRA [Concomitant]
     Dosage: UNK
     Route: 048
     Dates: start: 20121211, end: 20121211
  3. WARFARIN [Concomitant]
     Dosage: 7.5 MG, 1X/DAY
  4. KALNORMIN [Concomitant]
  5. HELICID [Concomitant]
  6. DIGOXIN [Concomitant]
  7. AKTIFERRIN [Concomitant]
  8. CONCOR [Concomitant]

REACTIONS (1)
  - Deep vein thrombosis [Recovered/Resolved]
